FAERS Safety Report 25574981 (Version 1)
Quarter: 2025Q3

REPORT INFORMATION
  Report Type: Spontaneous
  Country: US (occurrence: US)
  Receive Date: 20250718
  Receipt Date: 20250718
  Transmission Date: 20251021
  Serious: Yes (Hospitalization)
  Sender: AUROBINDO
  Company Number: US-MLMSERVICE-20250702-PI557444-00250-1

PATIENT
  Age: 45 Year
  Sex: Female

DRUGS (2)
  1. OXCARBAZEPINE [Interacting]
     Active Substance: OXCARBAZEPINE
     Indication: Mood swings
     Dosage: 1200 MILLIGRAM, ONCE A DAY
     Route: 065
  2. ARIPIPRAZOLE [Interacting]
     Active Substance: ARIPIPRAZOLE
     Indication: Mood swings
     Route: 065

REACTIONS (2)
  - Drug interaction [Unknown]
  - Antipsychotic drug level below therapeutic [Unknown]
